FAERS Safety Report 4756639-7 (Version None)
Quarter: 2005Q3

REPORT INFORMATION
  Report Type: 
  Country: None (occurrence: None)
  Receive Date: 20050830
  Receipt Date: 20050610
  Transmission Date: 20060218
  Serious: Yes (Life-Threatening, Hospitalization, Other)
  Sender: FDA-Public Use
  Company Number: US-GLAXOSMITHKLINE-A0562151A

PATIENT
  Age: 61 Year
  Sex: Male
  Weight: 70 kg

DRUGS (19)
  1. ZIAGEN [Suspect]
     Indication: HIV INFECTION
     Dosage: 300MG TWICE PER DAY
     Route: 048
     Dates: start: 20030624, end: 20050601
  2. VIRAMUNE [Suspect]
     Indication: HIV INFECTION
     Dosage: 200MG TWICE PER DAY
     Route: 048
     Dates: start: 19990730, end: 20050601
  3. REYATAZ [Concomitant]
     Dosage: 300MG PER DAY
     Route: 048
     Dates: start: 20040106, end: 20050601
  4. NORVIR [Concomitant]
     Dosage: 100MG PER DAY
     Route: 048
     Dates: start: 20040106, end: 20050601
  5. DIPHENOXYLATE HCL + ATROPINE SULFATE [Concomitant]
     Dosage: 2TAB FOUR TIMES PER DAY
     Route: 048
  6. GEMFIBROZIL [Concomitant]
     Dosage: 600MG TWICE PER DAY
     Route: 048
  7. GABAPENTIN [Concomitant]
     Dosage: 1200MG THREE TIMES PER DAY
     Route: 048
  8. BUPROPION SR [Concomitant]
     Dosage: 300MG PER DAY
     Route: 048
  9. TRAZODONE [Concomitant]
     Dosage: 50MG AT NIGHT
     Route: 048
  10. NASAREL [Concomitant]
     Dosage: 1SPR TWICE PER DAY
     Route: 045
  11. PULMICORT [Concomitant]
     Route: 055
  12. ALBUTEROL [Concomitant]
     Dosage: 2PUFF FOUR TIMES PER DAY
     Route: 055
  13. ACYCLOVIR [Concomitant]
     Dosage: 200MG TWICE PER DAY
     Route: 048
  14. DIAZEPAM [Concomitant]
     Dosage: 5MG AS REQUIRED
     Route: 048
  15. FISH OIL [Concomitant]
     Dosage: 1000MG TWICE PER DAY
     Route: 048
  16. ASCORBIC ACID [Concomitant]
     Dosage: 1000U TWICE PER DAY
     Route: 048
  17. VITAMIN E [Concomitant]
     Route: 048
  18. CALCIUM GLUCONATE [Concomitant]
     Dosage: 500U TWICE PER DAY
     Route: 048
  19. SAW PALMETTO [Concomitant]

REACTIONS (10)
  - ASTHENIA [None]
  - GALLBLADDER DISORDER [None]
  - HEPATIC FAILURE [None]
  - HEPATIC NECROSIS [None]
  - HEPATITIS [None]
  - JAUNDICE [None]
  - LIVER FUNCTION TEST ABNORMAL [None]
  - LIVER TENDERNESS [None]
  - MALAISE [None]
  - NAUSEA [None]
